FAERS Safety Report 7293432-8 (Version None)
Quarter: 2011Q1

REPORT INFORMATION
  Report Type: 
  Country: None (occurrence: None)
  Receive Date: 20110215
  Receipt Date: 20110211
  Transmission Date: 20110831
  Serious: Yes (Other)
  Sender: FDA-Public Use
  Company Number: FR-ABBOTT-11P-056-0704758-00

PATIENT
  Age: 36 Year
  Sex: Male

DRUGS (2)
  1. DEPAKENE [Suspect]
     Indication: PRODUCT USED FOR UNKNOWN INDICATION
  2. NOCERTONE [Suspect]
     Indication: PRODUCT USED FOR UNKNOWN INDICATION
     Route: 048
     Dates: start: 20101201

REACTIONS (2)
  - WEIGHT INCREASED [None]
  - HALLUCINATION, AUDITORY [None]
